FAERS Safety Report 5765872-7 (Version None)
Quarter: 2008Q2

REPORT INFORMATION
  Report Type: 
  Country: None (occurrence: None)
  Receive Date: 20080610
  Receipt Date: 20080610
  Transmission Date: 20081010
  Serious: Yes (Hospitalization)
  Sender: FDA-Public Use
  Company Number: None

PATIENT
  Age: 58 Year
  Sex: Male

DRUGS (3)
  1. OUR FAMILY SENTRY-VITE TABLETS [Suspect]
     Indication: VITAMIN SUPPLEMENTATION
     Dosage: 1/DAY ORAL
     Route: 048
     Dates: start: 20080513
  2. LISINOPRIL [Concomitant]
  3. ZOLOFT [Concomitant]

REACTIONS (6)
  - APPENDICECTOMY [None]
  - BLOOD PRESSURE DECREASED [None]
  - GASTRIC DISORDER [None]
  - MEDICATION ERROR [None]
  - PAIN [None]
  - PHARMACEUTICAL PRODUCT COMPLAINT [None]
